FAERS Safety Report 9227779 (Version 1)
Quarter: 2013Q2

REPORT INFORMATION
  Report Type: Spontaneous
  Country: US (occurrence: US)
  Receive Date: 20130412
  Receipt Date: 20130412
  Transmission Date: 20140414
  Serious: Yes (Other)
  Sender: FDA-Public Use
  Company Number: US-PFIZER INC-2013113752

PATIENT
  Age: 52 Year
  Sex: Male
  Weight: 108.84 kg

DRUGS (1)
  1. NORVASC [Suspect]
     Indication: HYPERTENSION
     Dosage: 10 MG, ONCE A DAY
     Route: 048
     Dates: end: 201303

REACTIONS (2)
  - Rotator cuff syndrome [Unknown]
  - Carpal tunnel syndrome [Unknown]
